FAERS Safety Report 4707786-7 (Version None)
Quarter: 2005Q2

REPORT INFORMATION
  Report Type: 
  Country: None (occurrence: None)
  Receive Date: 20050629
  Receipt Date: 20050418
  Transmission Date: 20051028
  Serious: No
  Sender: FDA-Public Use
  Company Number: 05P-163-0297800-00

PATIENT
  Age: 64 Year
  Sex: Female
  Weight: 56.6996 kg

DRUGS (10)
  1. HUMIRA [Suspect]
     Indication: RHEUMATOID ARTHRITIS
     Dosage: 40 MG, 1 IN 2 WK, SUBCUTANEOUS
     Route: 058
     Dates: start: 20040901
  2. PREDNISONE TAB [Concomitant]
  3. BUCINDOLOL HYDROCHLORIDE [Concomitant]
  4. CELECOXIB [Concomitant]
  5. CITALOPRAM HYDROBROMIDE [Concomitant]
  6. FOLIC ACID [Concomitant]
  7. OMEPRAZOLE [Concomitant]
  8. RISEDRONATE SODIUM [Concomitant]
  9. CLONIDINE [Concomitant]
  10. METHOTREXATE [Concomitant]

REACTIONS (4)
  - INJECTION SITE IRRITATION [None]
  - INJECTION SITE PRURITUS [None]
  - INJECTION SITE URTICARIA [None]
  - RHEUMATOID ARTHRITIS [None]
